FAERS Safety Report 11635909 (Version 1)
Quarter: 2015Q4

REPORT INFORMATION
  Report Type: Spontaneous
  Country: PL (occurrence: PL)
  Receive Date: 20151016
  Receipt Date: 20151016
  Transmission Date: 20160304
  Serious: Yes (Death, Other)
  Sender: FDA-Public Use
  Company Number: PL-AMGEN-POLSP2014072069

PATIENT
  Age: 42 Year
  Sex: Female
  Weight: 68 kg

DRUGS (1)
  1. VECTIBIX [Suspect]
     Active Substance: PANITUMUMAB
     Indication: MALIGNANT NEOPLASM PROGRESSION
     Dosage: 6 MG/KG B.W. (480 MG), EVERY TWO WEEKS
     Route: 042
     Dates: start: 20140625, end: 20140910

REACTIONS (5)
  - Ascites [Unknown]
  - Disease progression [Unknown]
  - Liver disorder [Unknown]
  - Pregnancy [Recovered/Resolved]
  - Death [Fatal]

NARRATIVE: CASE EVENT DATE: 20140910
